FAERS Safety Report 7597544-0 (Version None)
Quarter: 2011Q3

REPORT INFORMATION
  Report Type: 
  Country: None (occurrence: None)
  Receive Date: 20110708
  Receipt Date: 20110705
  Transmission Date: 20111222
  Serious: Yes (Death)
  Sender: FDA-Public Use
  Company Number: PHHY2011US21720

PATIENT
  Sex: Female

DRUGS (2)
  1. EXJADE [Suspect]
     Indication: IRON OVERLOAD
     Dosage: 1125 MG, QD
     Route: 048
     Dates: start: 20070808
  2. EXJADE [Suspect]
     Dosage: 1000 MG, DAILY
     Route: 048
     Dates: end: 20101001

REACTIONS (1)
  - MULTI-ORGAN FAILURE [None]
